FAERS Safety Report 7389356-8 (Version None)
Quarter: 2011Q2

REPORT INFORMATION
  Report Type: 
  Country: None (occurrence: None)
  Receive Date: 20110401
  Receipt Date: 20110323
  Transmission Date: 20111010
  Serious: Yes (Other)
  Sender: FDA-Public Use
  Company Number: B0699026A

PATIENT
  Sex: Male
  Weight: 137 kg

DRUGS (6)
  1. AMLODIPINE BESYLATE [Concomitant]
  2. ENALAPRIL + LERCANIDIPINE [Concomitant]
  3. AVANDAMET [Suspect]
     Route: 048
     Dates: start: 20051101, end: 20101115
  4. MEDIATOR [Suspect]
     Dosage: 3UNIT PER DAY
     Route: 048
     Dates: start: 20041101
  5. ISOMERIDE [Suspect]
     Indication: OVERWEIGHT
     Route: 048
     Dates: end: 19970101
  6. INEGY [Concomitant]
     Indication: CARDIOVASCULAR DISORDER

REACTIONS (4)
  - DYSPNOEA AT REST [None]
  - OEDEMA PERIPHERAL [None]
  - AORTIC STENOSIS [None]
  - DYSPNOEA EXERTIONAL [None]
